FAERS Safety Report 6554673-8 (Version None)
Quarter: 2010Q1

REPORT INFORMATION
  Report Type: 
  Country: None (occurrence: None)
  Receive Date: 20100127
  Receipt Date: 20100115
  Transmission Date: 20100710
  Serious: Yes (Hospitalization)
  Sender: FDA-Public Use
  Company Number: FR-PFIZER INC-2009301714

PATIENT
  Age: 15 Year
  Sex: Male

DRUGS (10)
  1. SOMATROPIN [Suspect]
     Dosage: UNK
     Route: 058
     Dates: start: 20050901, end: 20080825
  2. CORTANCYL [Concomitant]
     Dosage: UNK
     Route: 048
     Dates: start: 19991001
  3. METHOTREXATE SODIUM [Concomitant]
     Dosage: UNK
     Route: 048
  4. LEDERFOLIN [Concomitant]
     Dosage: UNK
     Route: 048
  5. OROCAL [Concomitant]
     Dosage: UNK
     Route: 048
     Dates: start: 20091001
  6. DIFFU K [Concomitant]
     Dosage: UNK
     Route: 048
     Dates: start: 20060716
  7. COSOPT [Concomitant]
     Dosage: UNK
     Dates: start: 20050913
  8. VEXOL [Concomitant]
     Dosage: UNK
     Dates: start: 20051220
  9. DEXAMETHASONE [Concomitant]
     Dosage: UNK
     Dates: start: 20080701
  10. ANDROTARDYL [Concomitant]
     Dosage: UNK
     Route: 058
     Dates: start: 20080310

REACTIONS (1)
  - UVEITIS [None]
